FAERS Safety Report 8348062-3 (Version None)
Quarter: 2012Q2

REPORT INFORMATION
  Report Type: 
  Country: None (occurrence: None)
  Receive Date: 20120509
  Receipt Date: 20100623
  Transmission Date: 20120825
  Serious: No
  Sender: FDA-Public Use
  Company Number: US-TEVA-2010003499

PATIENT
  Sex: Female
  Weight: 62.198 kg

DRUGS (5)
  1. NUVIGIL [Suspect]
     Indication: FATIGUE
     Dosage: 150 MILLIGRAM;
     Route: 048
     Dates: start: 20100622
  2. OMEPRAZOLE [Concomitant]
     Indication: DYSPEPSIA
     Dates: start: 20071101
  3. CELEBREX [Concomitant]
     Indication: ARTHRITIS
     Dates: start: 19990601
  4. NUVIGIL [Suspect]
     Dosage: 75 MILLIGRAM;
     Route: 048
     Dates: start: 20100623
  5. COPAXONE [Concomitant]
     Indication: MULTIPLE SCLEROSIS
     Dates: start: 20041201

REACTIONS (5)
  - HEADACHE [None]
  - INSOMNIA [None]
  - NAUSEA [None]
  - INTENTIONAL DRUG MISUSE [None]
  - DIARRHOEA [None]
